FAERS Safety Report 11965554 (Version 1)
Quarter: 2016Q1

REPORT INFORMATION
  Report Type: Spontaneous
  Country: BR (occurrence: BR)
  Receive Date: 20160127
  Receipt Date: 20160127
  Transmission Date: 20160526
  Serious: Yes (Other)
  Sender: FDA-Public Use
  Company Number: BR-PFIZER INC-2015425987

PATIENT
  Age: 88 Year
  Sex: Male
  Weight: 53 kg

DRUGS (6)
  1. AIDE 3 [Concomitant]
     Indication: RHEUMATIC DISORDER
     Dosage: UNK
     Dates: start: 2015
  2. FRESH TEARS /00007002/ [Concomitant]
     Dosage: UNK, 2X/DAY
  3. VITAMIN D /00107901/ [Concomitant]
     Active Substance: ERGOCALCIFEROL
  4. RISEDROSS [Concomitant]
     Active Substance: RISEDRONATE SODIUM
     Indication: RHEUMATIC DISORDER
     Dosage: 35 MG, UNK
     Dates: start: 2015
  5. XALATAN [Suspect]
     Active Substance: LATANOPROST
     Indication: INTRAOCULAR PRESSURE TEST ABNORMAL
     Dosage: ONE DROP IN EACH EYE, DAILY
     Route: 047
     Dates: start: 2008, end: 20151202
  6. PREDSIM [Concomitant]
     Active Substance: PREDNISOLONE
     Indication: ARTHRITIS
     Dosage: 5 MG, UNK
     Dates: start: 2011

REACTIONS (4)
  - Condition aggravated [Not Recovered/Not Resolved]
  - Cataract [Not Recovered/Not Resolved]
  - Rheumatoid arthritis [Not Recovered/Not Resolved]
  - Drug ineffective [Unknown]

NARRATIVE: CASE EVENT DATE: 2010
